FAERS Safety Report 16184629 (Version 1)
Quarter: 2019Q2

REPORT INFORMATION
  Report Type: Spontaneous
  Country: US (occurrence: US)
  Receive Date: 20190410
  Receipt Date: 20190410
  Transmission Date: 20190711
  Serious: Yes (Hospitalization)
  Sender: FDA-Public Use
  Company Number: None

PATIENT
  Age: 59 Year
  Sex: Male

DRUGS (16)
  1. HUMIRA [Suspect]
     Active Substance: ADALIMUMAB
     Indication: PSORIASIS
     Dosage: ?          OTHER FREQUENCY:QOW;?
     Route: 058
     Dates: start: 20171018
  2. CEFDINIR. [Concomitant]
     Active Substance: CEFDINIR
  3. ASPIRIN. [Concomitant]
     Active Substance: ASPIRIN
  4. ETODOLAC. [Concomitant]
     Active Substance: ETODOLAC
  5. FLUTICASONE. [Concomitant]
     Active Substance: FLUTICASONE
  6. METHYLPRED [Concomitant]
     Active Substance: METHYLPREDNISOLONE
  7. NAPROXEN. [Concomitant]
     Active Substance: NAPROXEN
  8. VITAMIN C [Concomitant]
     Active Substance: ASCORBIC ACID
  9. CLARITAN-D [Concomitant]
  10. SMZ/TMP [Concomitant]
     Active Substance: SULFAMETHOXAZOLE\TRIMETHOPRIM
  11. ACIPHEX [Concomitant]
     Active Substance: RABEPRAZOLE SODIUM
  12. GRAPE SEED [Concomitant]
     Active Substance: HERBALS\VITIS VINIFERA SEED
  13. PHENYLEPH [Concomitant]
  14. AMOXICILLIN. [Concomitant]
     Active Substance: AMOXICILLIN
  15. ZANAFLEX [Concomitant]
     Active Substance: TIZANIDINE HYDROCHLORIDE
  16. ZITHROMAX [Concomitant]
     Active Substance: AZITHROMYCIN DIHYDRATE

REACTIONS (5)
  - Pain [None]
  - Tendon rupture [None]
  - Condition aggravated [None]
  - Rash [None]
  - Exostosis [None]

NARRATIVE: CASE EVENT DATE: 20190330
